APPROVED DRUG PRODUCT: INTRALIPID 20%
Active Ingredient: SOYBEAN OIL
Strength: 20%
Dosage Form/Route: INJECTABLE;INJECTION
Application: N018449 | Product #001 | TE Code: AP
Applicant: FRESENIUS KABI DEUTSCHLAND GMBH
Approved: Approved Prior to Jan 1, 1982 | RLD: Yes | RS: Yes | Type: RX